FAERS Safety Report 9789247 (Version 1)
Quarter: 2013Q4

REPORT INFORMATION
  Report Type: Spontaneous
  Country: GB (occurrence: GB)
  Receive Date: 20131230
  Receipt Date: 20131230
  Transmission Date: 20140711
  Serious: Yes (Death)
  Sender: FDA-Public Use
  Company Number: GB-MYLANLABS-2013S1028263

PATIENT
  Age: 73 Year
  Sex: Male

DRUGS (6)
  1. BISOPROLOL [Suspect]
     Indication: MYOCARDIAL ISCHAEMIA
     Route: 048
  2. RAMIPRIL [Suspect]
     Indication: MYOCARDIAL ISCHAEMIA
     Route: 048
  3. TICAGRELOR [Suspect]
     Indication: CORONARY ARTERY DISEASE
     Route: 048
     Dates: start: 20110608
  4. ASA [Concomitant]
     Indication: MYOCARDIAL ISCHAEMIA
     Route: 048
  5. ATORVASTATIN [Concomitant]
     Indication: MYOCARDIAL ISCHAEMIA
     Route: 048
  6. GLYCERYL TRINITRATE [Concomitant]
     Indication: MYOCARDIAL ISCHAEMIA
     Route: 048

REACTIONS (1)
  - Completed suicide [Fatal]
